FAERS Safety Report 5572120-X (Version None)
Quarter: 2007Q4

REPORT INFORMATION
  Report Type: 
  Country: None (occurrence: None)
  Receive Date: 20071221
  Receipt Date: 20071217
  Transmission Date: 20080405
  Serious: Yes (Hospitalization)
  Sender: FDA-Public Use
  Company Number: US-GENENTECH-253083

PATIENT
  Sex: Male
  Weight: 66.667 kg

DRUGS (5)
  1. BEVACIZUMAB [Suspect]
     Indication: TONSIL CANCER
     Dosage: 15 MG/M2, UNK
     Route: 042
     Dates: start: 20070621
  2. ERLOTINIB [Suspect]
     Indication: TONSIL CANCER
     Dosage: 150 MG, UNK
     Dates: start: 20070621
  3. TAXOL [Suspect]
     Indication: TONSIL CANCER
     Dosage: 200 MG/M2, UNK
     Route: 042
     Dates: start: 20070621
  4. CARBOPLATIN [Suspect]
     Indication: TONSIL CANCER
     Dosage: 5 AUC, UNK
     Route: 042
     Dates: start: 20070621
  5. FLUOROURACIL [Suspect]
     Indication: TONSIL CANCER
     Dosage: 200 MG/M2, UNK
     Dates: start: 20070621

REACTIONS (1)
  - DYSPHAGIA [None]
